FAERS Safety Report 13140731 (Version 1)
Quarter: 2017Q1

REPORT INFORMATION
  Report Type: Spontaneous
  Country: US (occurrence: US)
  Receive Date: 20170123
  Receipt Date: 20170123
  Transmission Date: 20170428
  Serious: No
  Sender: FDA-Public Use
  Company Number: US-UNITED THERAPEUTICS-UNT-2016-015900

PATIENT
  Age: 74 Year
  Sex: Female
  Weight: 44.9 kg

DRUGS (4)
  1. REMODULIN [Suspect]
     Active Substance: TREPROSTINIL
     Indication: PULMONARY ARTERIAL HYPERTENSION
     Dosage: 0.036 ?G/KG, CONTINUING
     Route: 041
     Dates: start: 20080904
  2. DILTIAZEM. [Concomitant]
     Active Substance: DILTIAZEM
     Indication: PRODUCT USED FOR UNKNOWN INDICATION
  3. OPSUMIT [Concomitant]
     Active Substance: MACITENTAN
     Indication: PRODUCT USED FOR UNKNOWN INDICATION
  4. SILDENAFIL CITRATE. [Concomitant]
     Active Substance: SILDENAFIL CITRATE
     Indication: PRODUCT USED FOR UNKNOWN INDICATION

REACTIONS (7)
  - Pain in extremity [Recovering/Resolving]
  - Product use issue [Unknown]
  - Drug dose omission [Unknown]
  - Dyspnoea [Recovering/Resolving]
  - Sinusitis [Unknown]
  - Anxiety [Recovering/Resolving]
  - Nasal congestion [Unknown]

NARRATIVE: CASE EVENT DATE: 201610
